FAERS Safety Report 7533779-0 (Version None)
Quarter: 2011Q2

REPORT INFORMATION
  Report Type: 
  Country: None (occurrence: None)
  Receive Date: 20110608
  Receipt Date: 20110526
  Transmission Date: 20111010
  Serious: Yes (Death, Hospitalization)
  Sender: FDA-Public Use
  Company Number: CO-GENENTECH-302265

PATIENT
  Sex: Female
  Weight: 79 kg

DRUGS (20)
  1. PLACEBO [Suspect]
     Dosage: 21 UNK, Q21D
     Route: 042
     Dates: start: 20100420, end: 20100512
  2. PREDNISONE TAB [Suspect]
     Dosage: 21 UNK, Q21D
     Route: 042
     Dates: start: 20100420, end: 20100512
  3. DOXORUBICIN HCL [Suspect]
     Dosage: UNK
     Route: 065
     Dates: start: 20100805
  4. CLEMASTIN [Concomitant]
     Indication: PRODUCT USED FOR UNKNOWN INDICATION
     Dosage: UNK
     Dates: start: 20100420, end: 20100805
  5. DOXORUBICIN HCL [Suspect]
     Dosage: 21 UNK, Q21D
     Route: 042
     Dates: start: 20100420, end: 20100512
  6. CYCLOPHOSPHAMIDE [Suspect]
     Dosage: UNK
     Route: 065
     Dates: start: 20100805
  7. DOXORUBICIN HCL [Suspect]
     Indication: DIFFUSE LARGE B-CELL LYMPHOMA
     Dosage: 93 MG, QD
     Route: 065
     Dates: start: 20100421
  8. VINCRISTINE [Suspect]
     Indication: DIFFUSE LARGE B-CELL LYMPHOMA
     Dosage: 2 MG, QD
     Route: 065
     Dates: start: 20100421
  9. RITUXIMAB [Suspect]
     Dosage: UNK
     Route: 065
     Dates: start: 20100805
  10. PREDNISONE [Suspect]
     Dosage: UNK
     Route: 065
     Dates: start: 20100805
  11. ACETAMINOPHEN [Concomitant]
     Indication: PRODUCT USED FOR UNKNOWN INDICATION
     Dosage: UNK
     Dates: start: 20100420, end: 20100805
  12. RITUXIMAB [Suspect]
     Indication: DIFFUSE LARGE B-CELL LYMPHOMA
     Dosage: 700 MG, QD
     Route: 065
     Dates: start: 20100420
  13. VINCRISTINE [Suspect]
     Dosage: 21 UNK, Q21D
     Route: 042
     Dates: start: 20100420, end: 20100512
  14. CYCLOPHOSPHAMIDE [Suspect]
     Indication: DIFFUSE LARGE B-CELL LYMPHOMA
     Dosage: 1400 MG, UNK
     Route: 065
     Dates: start: 20100420
  15. BLINDED BEVACIZUMAB [Suspect]
     Dosage: 21 UNK, Q21D
     Route: 042
     Dates: start: 20100420, end: 20100512
  16. BLINDED RITUXIMAB [Suspect]
     Dosage: 21 UNK, Q21D
     Route: 042
     Dates: start: 20100420, end: 20100512
  17. VINCRISTINE [Suspect]
     Dosage: UNK
     Route: 065
     Dates: start: 20100805
  18. CYCLOPHOSPHAMIDE [Suspect]
     Dosage: 21 UNK, Q21D
     Route: 042
     Dates: start: 20100420, end: 20100512
  19. PREDNISONE [Suspect]
     Indication: DIFFUSE LARGE B-CELL LYMPHOMA
     Dosage: 100 MG, QD
     Route: 065
     Dates: start: 20100421
  20. PEGFILGRASTIM [Concomitant]
     Indication: PRODUCT USED FOR UNKNOWN INDICATION
     Dosage: UNK
     Dates: start: 20100422, end: 20100805

REACTIONS (2)
  - FEBRILE NEUTROPENIA [None]
  - URINARY TRACT INFECTION [None]
